FAERS Safety Report 11954059 (Version 1)
Quarter: 2016Q1

REPORT INFORMATION
  Report Type: Report from Study
  Country: JP (occurrence: JP)
  Receive Date: 20160126
  Receipt Date: 20160126
  Transmission Date: 20160526
  Serious: Yes (Other)
  Sender: FDA-Public Use
  Company Number: JP-CELGENEUS-JPN-2015071985

PATIENT
  Age: 49 Year
  Sex: Female

DRUGS (11)
  1. POMALYST [Suspect]
     Active Substance: POMALIDOMIDE
     Indication: PLASMA CELL MYELOMA RECURRENT
     Route: 048
     Dates: start: 20150623, end: 20150711
  2. LENADEX [Suspect]
     Active Substance: DEXAMETHASONE ACETATE
     Route: 048
     Dates: start: 20150721, end: 20150811
  3. BAYASPIRIN [Concomitant]
     Active Substance: ASPIRIN
     Indication: PROPHYLAXIS
     Route: 048
     Dates: start: 20150623
  4. VICCLOX [Concomitant]
     Active Substance: ACYCLOVIR SODIUM
     Indication: PROPHYLAXIS
     Route: 048
  5. LENADEX [Suspect]
     Active Substance: DEXAMETHASONE ACETATE
     Indication: PLASMA CELL MYELOMA RECURRENT
     Route: 048
     Dates: start: 20150623, end: 20150714
  6. DUROTEP [Concomitant]
     Active Substance: FENTANYL
     Indication: PLASMA CELL MYELOMA RECURRENT
     Route: 062
  7. POMALYST [Suspect]
     Active Substance: POMALIDOMIDE
     Route: 048
     Dates: start: 20150727, end: 20150812
  8. PARIET [Concomitant]
     Active Substance: RABEPRAZOLE SODIUM
     Indication: PROPHYLAXIS
     Route: 048
  9. LEVOFLOXACIN. [Concomitant]
     Active Substance: LEVOFLOXACIN
     Indication: PROPHYLAXIS
     Dosage: 100 MILLIGRAM
     Route: 048
  10. BAKTAR [Concomitant]
     Active Substance: SULFAMETHOXAZOLE\TRIMETHOPRIM
     Indication: PROPHYLAXIS
     Route: 048
  11. LOXOPROFEN [Concomitant]
     Active Substance: LOXOPROFEN
     Indication: PLASMA CELL MYELOMA RECURRENT
     Route: 048

REACTIONS (5)
  - White blood cell count decreased [Recovered/Resolved]
  - Lymphocyte count decreased [Unknown]
  - Neutrophil count decreased [Recovered/Resolved]
  - Neutrophil count decreased [Unknown]
  - Abdominal discomfort [Recovered/Resolved]

NARRATIVE: CASE EVENT DATE: 20150630
